FAERS Safety Report 17985470 (Version 1)
Quarter: 2020Q3

REPORT INFORMATION
  Report Type: Spontaneous
  Country: US (occurrence: US)
  Receive Date: 20200706
  Receipt Date: 20200706
  Transmission Date: 20201103
  Serious: Yes (Life-Threatening)
  Sender: FDA-Public Use
  Company Number: US-MYLANLABS-2020M1060719

PATIENT
  Age: 50 Year
  Sex: Female
  Weight: 124 kg

DRUGS (3)
  1. EPINEPHRINE INJECTION USP AUTO?INJECTOR [Suspect]
     Active Substance: EPINEPHRINE
     Indication: ANAPHYLACTIC REACTION
     Dosage: AS NEEDED FOR SEVERE ALLERGY / ANAPHYLAXIS
     Route: 030
     Dates: start: 20200626
  2. ATORVASTATIN [Concomitant]
     Active Substance: ATORVASTATIN
     Dosage: UNK UNK, QD
  3. LOSARTAN AUROBINDO [Concomitant]
     Active Substance: LOSARTAN
     Dosage: 100 MILLIGRAM, AFTER DINNER AS DIRECTED

REACTIONS (2)
  - Device failure [Not Recovered/Not Resolved]
  - Dysgeusia [Not Recovered/Not Resolved]

NARRATIVE: CASE EVENT DATE: 20200626
